FAERS Safety Report 20825606 (Version 1)
Quarter: 2022Q2

REPORT INFORMATION
  Report Type: Spontaneous
  Country: CA (occurrence: CA)
  Receive Date: 20220513
  Receipt Date: 20220513
  Transmission Date: 20220720
  Serious: Yes (Hospitalization)
  Sender: FDA-Public Use
  Company Number: CA-STRIDES ARCOLAB LIMITED-2022SP005246

PATIENT
  Age: 58 Year
  Sex: Male

DRUGS (8)
  1. TACROLIMUS [Suspect]
     Active Substance: TACROLIMUS
     Indication: Renal transplant
     Dosage: 3 MILLIGRAM PER DAY
     Route: 065
     Dates: start: 2014
  2. TACROLIMUS [Suspect]
     Active Substance: TACROLIMUS
     Dosage: UNK, DOSE WAS REDUCED TO TARGET TROUGH LEVELS OF 4-6 MICROG/L
     Route: 065
     Dates: start: 2014
  3. MYCOPHENOLATE MOFETIL [Suspect]
     Active Substance: MYCOPHENOLATE MOFETIL
     Indication: Renal transplant
     Dosage: 2 MILLIGRAM PER DAY
     Route: 065
     Dates: start: 2014, end: 2014
  4. PREDNISOLONE [Suspect]
     Active Substance: PREDNISOLONE
     Indication: Renal transplant
     Dosage: 5 MILLIGRAM PER DAY
     Route: 065
     Dates: start: 2014, end: 2014
  5. THYMOGLOBULIN [Suspect]
     Active Substance: LAPINE T-LYMPHOCYTE IMMUNE GLOBULIN
     Indication: Transplant rejection
     Dosage: UNK
     Route: 065
  6. SIROLIMUS [Suspect]
     Active Substance: SIROLIMUS
     Indication: Renal transplant
     Dosage: UNK (INDUCTION THERAPY)
     Route: 065
     Dates: start: 2014, end: 2014
  7. BASILIXIMAB [Suspect]
     Active Substance: BASILIXIMAB
     Indication: Renal transplant
     Dosage: UNK (INDUCTION THERAPY)
     Route: 065
     Dates: start: 2014, end: 2014
  8. CYCLOSPORINE [Suspect]
     Active Substance: CYCLOSPORINE
     Indication: Renal transplant
     Dosage: UNK (INDUCTION THERAPY)
     Route: 065
     Dates: start: 2014, end: 2014

REACTIONS (9)
  - Granuloma [Unknown]
  - Renal tubular necrosis [Unknown]
  - Hydronephrosis [Unknown]
  - Enterobacter infection [Unknown]
  - Escherichia infection [Unknown]
  - Klebsiella infection [Unknown]
  - Abdominal wall abscess [Unknown]
  - Cytomegalovirus viraemia [Unknown]
  - Transplant rejection [Unknown]

NARRATIVE: CASE EVENT DATE: 20140101
